FAERS Safety Report 8994802 (Version 1)
Quarter: 2012Q4

REPORT INFORMATION
  Report Type: Spontaneous
  Country: US (occurrence: None)
  Receive Date: 20121228
  Receipt Date: 20121228
  Transmission Date: 20130627
  Serious: Yes (Disabling, Other)
  Sender: FDA-Public Use
  Company Number: None

PATIENT
  Age: 35 Year
  Sex: Male
  Weight: 92.53 kg

DRUGS (3)
  1. OLANZAPINE [Suspect]
     Indication: SCHIZOPHRENIA
     Dosage: 10 Mg Q AM PO
     Route: 048
     Dates: start: 200210
  2. TRILEPTAL [Suspect]
     Indication: EPILEPSY
     Dosage: 600Mg + 300Mg BID PO
     Route: 048
     Dates: start: 201208
  3. TRILEPTAL [Suspect]
     Indication: EPILEPSY

REACTIONS (2)
  - Convulsion [None]
  - Cyanosis [None]
